FAERS Safety Report 8058344-0 (Version None)
Quarter: 2012Q1

REPORT INFORMATION
  Report Type: 
  Country: None (occurrence: None)
  Receive Date: 20120120
  Receipt Date: 20120109
  Transmission Date: 20120608
  Serious: Yes (Other)
  Sender: FDA-Public Use
  Company Number: DE-ELI_LILLY_AND_COMPANY-DE201201002795

PATIENT
  Sex: Female

DRUGS (1)
  1. DULOXETIME HYDROCHLORIDE [Suspect]
     Dosage: UNK, UNKNOWN
     Route: 048

REACTIONS (3)
  - MEDICATION ERROR [None]
  - GASTROINTESTINAL TUBE INSERTION [None]
  - FEEDING TUBE COMPLICATION [None]
